FAERS Safety Report 23064663 (Version 1)
Quarter: 2023Q4

REPORT INFORMATION
  Report Type: Spontaneous
  Country: US (occurrence: None)
  Receive Date: 20231013
  Receipt Date: 20231013
  Transmission Date: 20240110
  Serious: Yes (Death)
  Sender: FDA-Public Use
  Company Number: None

PATIENT
  Age: 42 Year
  Sex: Female
  Weight: 80 kg

DRUGS (1)
  1. YESCARTA [Suspect]
     Active Substance: AXICABTAGENE CILOLEUCEL
     Indication: B-cell lymphoma
     Dates: start: 20231006, end: 20231006

REACTIONS (15)
  - Cytokine release syndrome [None]
  - Abdominal pain [None]
  - Ascites [None]
  - Gastrointestinal wall thickening [None]
  - Confusional state [None]
  - Somnambulism [None]
  - Acute kidney injury [None]
  - Hypotension [None]
  - Infection [None]
  - Brain fog [None]
  - Lethargy [None]
  - Acidosis [None]
  - Haemophagocytic lymphohistiocytosis [None]
  - Haemophagocytic lymphohistiocytosis [None]
  - Cardiac arrest [None]

NARRATIVE: CASE EVENT DATE: 20231011
